FAERS Safety Report 19361908 (Version 1)
Quarter: 2021Q2

REPORT INFORMATION
  Report Type: Spontaneous
  Country: US (occurrence: US)
  Receive Date: 20210601
  Receipt Date: 20210601
  Transmission Date: 20210717
  Serious: Yes (Life-Threatening)
  Sender: FDA-Public Use
  Company Number: US-ASTRAZENECA-2021A481156

PATIENT
  Sex: Male
  Weight: 113.9 kg

DRUGS (1)
  1. FARXIGA [Suspect]
     Active Substance: DAPAGLIFLOZIN PROPANEDIOL
     Indication: DIABETES MELLITUS
     Route: 048

REACTIONS (4)
  - Anaphylactic reaction [Unknown]
  - Pharyngeal swelling [Unknown]
  - Mouth swelling [Unknown]
  - Dyspnoea [Unknown]
